FAERS Safety Report 11861776 (Version 2)
Quarter: 2016Q1

REPORT INFORMATION
  Report Type: Spontaneous
  Country: PL (occurrence: PL)
  Receive Date: 20151222
  Receipt Date: 20160225
  Transmission Date: 20160526
  Serious: Yes (Hospitalization)
  Sender: FDA-Public Use
  Company Number: PL-ABBVIE-15P-129-1523158-00

PATIENT
  Age: 56 Year
  Sex: Female
  Weight: 55 kg

DRUGS (3)
  1. EXVIERA [Suspect]
     Active Substance: DASABUVIR
     Indication: HEPATITIS C
     Route: 048
     Dates: start: 20151105, end: 20160128
  2. VIEKIRAX [Suspect]
     Active Substance: OMBITASVIR\PARITAPREVIR\RITONAVIR
     Indication: HEPATITIS C
     Route: 048
     Dates: start: 20151105, end: 20160128
  3. MODERIBA [Suspect]
     Active Substance: RIBAVIRIN
     Indication: HEPATITIS C
     Dosage: 2 + 3 TABL.
     Route: 048
     Dates: start: 20151105, end: 20160128

REACTIONS (12)
  - Dyspnoea [Unknown]
  - White blood cell count increased [Unknown]
  - Lower respiratory tract infection [Unknown]
  - Disseminated intravascular coagulation [Unknown]
  - Pneumonia [Unknown]
  - C-reactive protein increased [Unknown]
  - Fibrin D dimer increased [Unknown]
  - Ascites [Unknown]
  - White blood cell disorder [Unknown]
  - Pleural effusion [Unknown]
  - Blood bilirubin increased [Unknown]
  - Asthenia [Unknown]

NARRATIVE: CASE EVENT DATE: 20151202
